FAERS Safety Report 8474564-5 (Version None)
Quarter: 2012Q2

REPORT INFORMATION
  Report Type: 
  Country: None (occurrence: None)
  Receive Date: 20120628
  Receipt Date: 20120620
  Transmission Date: 20120825
  Serious: Yes (Hospitalization)
  Sender: FDA-Public Use
  Company Number: US-BAYER-2012-062454

PATIENT
  Age: 31 Year
  Sex: Female
  Weight: 80.726 kg

DRUGS (6)
  1. XANAX [Concomitant]
     Dosage: 0.25 MG, TID
     Route: 048
  2. VICODIN [Concomitant]
  3. DROSPIRENONE AND ETHINYL ESTRADIOL [Suspect]
  4. LEXAPRO [Concomitant]
     Indication: PANIC DISORDER
     Dosage: 10 MG, DAILY
     Route: 048
  5. YASMIN [Suspect]
  6. TYLENOL PM [Concomitant]
     Route: 048

REACTIONS (1)
  - INTRACRANIAL VENOUS SINUS THROMBOSIS [None]
